FAERS Safety Report 7061970-9 (Version None)
Quarter: 2010Q4

REPORT INFORMATION
  Report Type: 
  Country: None (occurrence: None)
  Receive Date: 20101026
  Receipt Date: 20101018
  Transmission Date: 20110411
  Serious: Yes (Hospitalization, Other)
  Sender: FDA-Public Use
  Company Number: BR-SANOFI-AVENTIS-2010SA063682

PATIENT
  Sex: Male
  Weight: 58 kg

DRUGS (16)
  1. LANTUS [Suspect]
     Indication: TYPE 2 DIABETES MELLITUS
     Route: 058
     Dates: start: 20000101
  2. LANTUS [Suspect]
     Route: 058
  3. AUTOPEN 24 [Suspect]
  4. CYCLOSPORINE [Concomitant]
     Route: 048
     Dates: start: 20100704
  5. OMEPRAZOLE [Concomitant]
     Indication: GASTRIC DISORDER
     Route: 048
     Dates: start: 20100704
  6. SUSTRATE [Concomitant]
     Route: 048
  7. ATENOLOL [Concomitant]
     Indication: HYPERTENSION
     Route: 048
     Dates: start: 20040101
  8. AZATHIOPRINE [Concomitant]
     Route: 048
     Dates: start: 20100704
  9. PREDNISONE [Concomitant]
     Route: 048
     Dates: start: 20100704
  10. FOLIC ACID [Concomitant]
     Indication: NUTRITIONAL SUPPORT
     Route: 048
     Dates: start: 20100704
  11. ISONIAZID [Concomitant]
     Route: 048
     Dates: start: 20100704
  12. SIMVASTATIN [Concomitant]
     Route: 048
     Dates: start: 20040101
  13. CEPHALEXIN [Concomitant]
     Indication: TUBERCULOSIS
     Route: 048
     Dates: start: 20100704
  14. ALL OTHER THERAPEUTIC PRODUCTS [Concomitant]
     Indication: INSOMNIA
     Route: 048
  15. GLUCERNA ^ROSS^ [Concomitant]
     Indication: NUTRITIONAL SUPPORT
     Route: 048
  16. VITAMIN B COMPLEX CAP [Concomitant]
     Indication: NUTRITIONAL SUPPORT
     Route: 048
     Dates: start: 20100704

REACTIONS (10)
  - CATARACT [None]
  - CORONARY ARTERY OCCLUSION [None]
  - DIABETIC RETINOPATHY [None]
  - HUNGER [None]
  - HYPERGLYCAEMIA [None]
  - HYPERTENSIVE CRISIS [None]
  - HYPOGLYCAEMIA [None]
  - RENAL IMPAIRMENT [None]
  - TREMOR [None]
  - VISUAL ACUITY REDUCED [None]
